FAERS Safety Report 8782917 (Version 1)
Quarter: 2012Q4

REPORT INFORMATION
  Report Type: 
  Country: GB (occurrence: GB)
  Receive Date: 20120913
  Receipt Date: 20120913
  Transmission Date: 20130627
  Serious: Yes (Other)
  Sender: FDA-Public Use
  Company Number: PHHY2012GB078735

PATIENT
  Sex: Female

DRUGS (1)
  1. OMEPRAZOLE [Suspect]
     Route: 048

REACTIONS (28)
  - Eye haemorrhage [Unknown]
  - Visual impairment [Unknown]
  - Intestinal haemorrhage [Unknown]
  - Vitreous detachment [Unknown]
  - Anaemia [Unknown]
  - Angiopathy [Unknown]
  - Dyspepsia [Unknown]
  - Mouth haemorrhage [Unknown]
  - Cellulitis [Unknown]
  - Osteopenia [Unknown]
  - Photopsia [Unknown]
  - Depression [Unknown]
  - Dry eye [Unknown]
  - Dyspnoea [Unknown]
  - Vitamin D deficiency [Unknown]
  - Breast enlargement [Unknown]
  - Breast disorder female [Unknown]
  - Pain [Unknown]
  - Fall [Unknown]
  - Erythema [Unknown]
  - Tremor [Unknown]
  - Weight decreased [Unknown]
  - Headache [Unknown]
  - Confusional state [Unknown]
  - Muscular weakness [Unknown]
  - Skin burning sensation [Unknown]
  - Oedema peripheral [Unknown]
  - Dry mouth [Unknown]
